FAERS Safety Report 8418608-5 (Version None)
Quarter: 2012Q2

REPORT INFORMATION
  Report Type: 
  Country: None (occurrence: None)
  Receive Date: 20120607
  Receipt Date: 20120530
  Transmission Date: 20120825
  Serious: Yes (Hospitalization)
  Sender: FDA-Public Use
  Company Number: US-JNJFOC-20120516173

PATIENT
  Sex: Female
  Weight: 58.6 kg

DRUGS (40)
  1. SCOPOLAMINE [Concomitant]
  2. AMOXICILLIN [Concomitant]
  3. SIMETHICONE [Concomitant]
  4. IMODIUM [Concomitant]
  5. NEOSTIGMINE [Concomitant]
  6. OXYCODONE HCL [Concomitant]
  7. BENADRYL [Concomitant]
  8. MAGNESIUM OXIDE [Concomitant]
  9. DEXMEDETOMODINE HYDROCHLORIDE [Concomitant]
  10. ERTAPENEM [Concomitant]
  11. ROCURONIUM BROMIDE [Concomitant]
  12. AZITHROMYCIN [Concomitant]
  13. TRIMETHOPRIM [Concomitant]
  14. GLYCOPYRROLATE [Concomitant]
  15. ONDANSETRON [Concomitant]
  16. SODIUM CHLORIDE [Concomitant]
  17. DEXAMETHASONE [Concomitant]
  18. ATIVAN [Concomitant]
  19. LACTATED RINGER'S [Concomitant]
  20. REMICADE [Suspect]
     Indication: COLITIS ULCERATIVE
     Route: 042
     Dates: start: 20110902, end: 20111013
  21. ACETAMINOPHEN [Concomitant]
  22. PROMETHAZINE [Concomitant]
  23. ISOFLURANE [Concomitant]
  24. PHENYLEPHRINE HYDROCHLORIDE [Concomitant]
  25. HYDROMORPHONE HYDROCHLORIDE [Concomitant]
  26. HEPARIN [Concomitant]
  27. FENTANYL [Concomitant]
  28. MIDAZOLAM [Concomitant]
  29. PROPOFOL [Concomitant]
  30. ZYDONE [Concomitant]
  31. VOLUVEN [Concomitant]
  32. VITAMIN D [Concomitant]
  33. BENTYL [Concomitant]
  34. HYOSCYAMINE [Concomitant]
  35. BUPIVACAINE HCL [Concomitant]
  36. FLOMAX [Concomitant]
  37. POTASSIUM CHLORIDE [Concomitant]
  38. LIDOCAINE [Concomitant]
  39. ALL OTHER THERAPEUTIC PRODUCTS [Concomitant]
  40. ALL OTHER THERAPEUTIC PRODUCTS [Concomitant]

REACTIONS (1)
  - ABSCESS [None]
